FAERS Safety Report 9068565 (Version 2)
Quarter: 2013Q1

REPORT INFORMATION
  Report Type: Spontaneous
  Country: JP (occurrence: JP)
  Receive Date: 20130206
  Receipt Date: 20130311
  Transmission Date: 20140127
  Serious: Yes (Hospitalization)
  Sender: FDA-Public Use
  Company Number: JP-ELI_LILLY_AND_COMPANY-JP201302000011

PATIENT
  Age: 76 Year
  Sex: Male

DRUGS (2)
  1. ALIMTA [Suspect]
     Indication: LUNG ADENOCARCINOMA
     Dosage: 870 MG, UNK
     Route: 042
     Dates: start: 20111225
  2. IRESSA [Concomitant]
     Indication: LUNG ADENOCARCINOMA
     Dosage: 250 MG, UNK
     Route: 048
     Dates: start: 20110608

REACTIONS (1)
  - Hepatic function abnormal [Recovering/Resolving]
